FAERS Safety Report 5536703-5 (Version None)
Quarter: 2007Q4

REPORT INFORMATION
  Report Type: 
  Country: None (occurrence: None)
  Receive Date: 20071206
  Receipt Date: 20070613
  Transmission Date: 20080405
  Serious: Yes (Other)
  Sender: FDA-Public Use
  Company Number: US-AMGEN-STX226065

PATIENT
  Sex: Female

DRUGS (8)
  1. ENBREL [Suspect]
     Indication: PSORIASIS
     Route: 065
  2. PREVACID [Concomitant]
  3. AMBIEN [Concomitant]
  4. PRENATAL VITAMINS [Concomitant]
  5. OMEGA 3 [Concomitant]
  6. FERROUS SULFATE TAB [Concomitant]
  7. ESTROPIPATE [Concomitant]
  8. PRANDIN [Concomitant]

REACTIONS (1)
  - BREAST CANCER [None]
